FAERS Safety Report 5374818-5 (Version None)
Quarter: 2007Q2

REPORT INFORMATION
  Report Type: 
  Country: None (occurrence: None)
  Receive Date: 20070629
  Receipt Date: 20070627
  Transmission Date: 20071010
  Serious: Yes (Other)
  Sender: FDA-Public Use
  Company Number: A0660353A

PATIENT
  Age: 20 Year

DRUGS (3)
  1. LAMICTAL [Suspect]
     Indication: BIPOLAR DISORDER
     Dosage: 50MG PER DAY
     Route: 048
  2. ZOLOFT [Concomitant]
  3. PROTEIN SHAKE [Concomitant]

REACTIONS (3)
  - HEPATIC ENZYME INCREASED [None]
  - HYPOKALAEMIA [None]
  - HYPONATRAEMIA [None]
